FAERS Safety Report 6854470-X (Version None)
Quarter: 2010Q3

REPORT INFORMATION
  Report Type: 
  Country: None (occurrence: None)
  Receive Date: 20100717
  Receipt Date: 20080107
  Transmission Date: 20110219
  Serious: No
  Sender: FDA-Public Use
  Company Number: US-PFIZER INC-2008002084

PATIENT
  Sex: Male
  Weight: 64.545 kg

DRUGS (9)
  1. CHANTIX [Suspect]
     Indication: SMOKING CESSATION THERAPY
     Dates: start: 20070101
  2. PRILOSEC [Concomitant]
  3. PRAVASTATIN [Concomitant]
  4. ALL OTHER THERAPEUTIC PRODUCTS [Concomitant]
  5. XANAX [Concomitant]
  6. OXYCODONE HCL [Concomitant]
  7. SEROQUEL [Concomitant]
  8. HYDROXYZINE PAMOATE [Concomitant]
  9. VERAPAMIL [Concomitant]

REACTIONS (1)
  - ABNORMAL DREAMS [None]
